FAERS Safety Report 5314297-7 (Version None)
Quarter: 2007Q2

REPORT INFORMATION
  Report Type: 
  Country: None (occurrence: None)
  Receive Date: 20070425
  Receipt Date: 20070417
  Transmission Date: 20071010
  Serious: Yes (Other)
  Sender: FDA-Public Use
  Company Number: 2007SP007331

PATIENT
  Age: 56 Year
  Sex: Male

DRUGS (2)
  1. PEG-INTRON (PEGINTERFERON ALFA-2B) [Suspect]
     Indication: HEPATITIS C
     Dosage: ; SC
     Route: 058
     Dates: start: 20070202, end: 20070301
  2. REBETOL [Suspect]
     Indication: HEPATITIS C
     Dosage: ; PO
     Route: 048
     Dates: start: 20070202, end: 20070301

REACTIONS (7)
  - ARTHRALGIA [None]
  - CONVULSION [None]
  - DYSGRAPHIA [None]
  - PAIN [None]
  - SPEECH DISORDER [None]
  - TREMOR [None]
  - UNEVALUABLE EVENT [None]
